FAERS Safety Report 5341679-X (Version None)
Quarter: 2007Q2

REPORT INFORMATION
  Report Type: 
  Country: None (occurrence: None)
  Receive Date: 20070601
  Receipt Date: 20070530
  Transmission Date: 20071010
  Serious: Yes (Death)
  Sender: FDA-Public Use
  Company Number: CHWYE761631MAY07

PATIENT
  Age: 83 Year
  Sex: Male

DRUGS (2)
  1. EFFEXOR [Suspect]
     Indication: DEPRESSION
     Dates: start: 20070401, end: 20070401
  2. THYROID HORMONES [Concomitant]

REACTIONS (1)
  - HEPATIC NECROSIS [None]
